FAERS Safety Report 14429131 (Version 1)
Quarter: 2018Q1

REPORT INFORMATION
  Report Type: Spontaneous
  Country: US (occurrence: US)
  Receive Date: 20180123
  Receipt Date: 20180123
  Transmission Date: 20180509
  Serious: No
  Sender: FDA-Public Use
  Company Number: None

PATIENT
  Age: 54 Year
  Sex: Female

DRUGS (1)
  1. COPAXONE [Suspect]
     Active Substance: GLATIRAMER ACETATE
     Indication: MULTIPLE SCLEROSIS
     Route: 058
     Dates: start: 20161025

REACTIONS (6)
  - Loss of consciousness [None]
  - Pruritus [None]
  - Fatigue [None]
  - Pain [None]
  - Feeling cold [None]
  - Musculoskeletal stiffness [None]

NARRATIVE: CASE EVENT DATE: 20180122
